FAERS Safety Report 9410377 (Version 1)
Quarter: 2013Q3

REPORT INFORMATION
  Report Type: Spontaneous
  Country: US (occurrence: US)
  Receive Date: 20130719
  Receipt Date: 20130719
  Transmission Date: 20140515
  Serious: Yes (Other)
  Sender: FDA-Public Use
  Company Number: US-009507513-1307USA007136

PATIENT
  Sex: Female
  Weight: 49.89 kg

DRUGS (6)
  1. COZAAR [Suspect]
     Indication: HYPERTENSION
     Dosage: UNK
     Route: 048
  2. LYRICA [Interacting]
     Indication: NEURALGIA
     Dosage: 75 MG, QD
     Route: 048
     Dates: start: 201303
  3. LYRICA [Interacting]
     Dosage: 75 MG, QD
     Route: 048
     Dates: start: 2013
  4. GABAPENTIN [Interacting]
     Indication: NEURALGIA
     Dosage: 400 MG, UNKNOWN FREQUENCY
     Dates: start: 2013, end: 2013
  5. FLOVENT [Concomitant]
     Indication: LUNG DISORDER
  6. LIPITOR [Concomitant]
     Indication: BLOOD CHOLESTEROL INCREASED

REACTIONS (5)
  - Rash [Recovered/Resolved]
  - Hypotension [Unknown]
  - Drug interaction [Unknown]
  - Hyperkalaemia [Unknown]
  - Rash [Recovered/Resolved]
